FAERS Safety Report 11233837 (Version 2)
Quarter: 2015Q4

REPORT INFORMATION
  Report Type: Spontaneous
  Country: TW (occurrence: TW)
  Receive Date: 20150702
  Receipt Date: 20151102
  Transmission Date: 20160304
  Serious: Yes (Death, Hospitalization)
  Sender: FDA-Public Use
  Company Number: TW-CELGENE-TWN-2015063686

PATIENT
  Age: 81 Year
  Sex: Male
  Weight: 61 kg

DRUGS (2)
  1. AZACITIDINE. [Suspect]
     Active Substance: AZACITIDINE
     Indication: MYELODYSPLASTIC SYNDROME
     Route: 058
     Dates: start: 20150423, end: 20150528
  2. AZACITIDINE. [Suspect]
     Active Substance: AZACITIDINE
     Indication: THROMBOCYTOPENIA

REACTIONS (3)
  - Febrile neutropenia [Not Recovered/Not Resolved]
  - Cardiac failure congestive [Fatal]
  - Hypokalaemia [Not Recovered/Not Resolved]

NARRATIVE: CASE EVENT DATE: 20150608
